FAERS Safety Report 6537507-7 (Version None)
Quarter: 2010Q1

REPORT INFORMATION
  Report Type: 
  Country: None (occurrence: None)
  Receive Date: 20100114
  Receipt Date: 20100106
  Transmission Date: 20100710
  Serious: Yes (Hospitalization)
  Sender: FDA-Public Use
  Company Number: NL-ELI_LILLY_AND_COMPANY-NL200912003567

PATIENT
  Sex: Female
  Weight: 55 kg

DRUGS (6)
  1. ALIMTA [Suspect]
     Indication: NON-SMALL CELL LUNG CANCER RECURRENT
     Dosage: 775 MG, UNKNOWN
     Route: 042
     Dates: start: 20091201, end: 20091201
  2. CARBOPLATIN [Concomitant]
     Indication: NON-SMALL CELL LUNG CANCER RECURRENT
     Dosage: 500 MG, UNKNOWN
     Route: 042
     Dates: start: 20091201, end: 20091201
  3. CISPLATIN [Concomitant]
     Dosage: UNK, UNKNOWN
     Route: 065
  4. GEMZAR [Concomitant]
     Dosage: UNK, UNKNOWN
     Route: 065
  5. OXYNORM [Concomitant]
     Indication: PAIN
     Dosage: 5 MG, UNKNOWN
     Route: 048
     Dates: start: 20090615
  6. ORAMORPH SR [Concomitant]
     Indication: PAIN
     Dosage: 80 MG, UNKNOWN
     Route: 048
     Dates: start: 20090615

REACTIONS (1)
  - MYOCARDIAL INFARCTION [None]
